FAERS Safety Report 23937828 (Version 1)
Quarter: 2024Q2

REPORT INFORMATION
  Report Type: Spontaneous
  Country: US (occurrence: None)
  Receive Date: 20240604
  Receipt Date: 20240604
  Transmission Date: 20240715
  Serious: Yes (Hospitalization)
  Sender: FDA-Public Use
  Company Number: None

PATIENT
  Sex: Female

DRUGS (2)
  1. TACROLIMUS [Suspect]
     Active Substance: TACROLIMUS
     Indication: Intestinal transplant
     Dosage: FREQUENCY : AS DIRECTED;?
     Route: 048
     Dates: start: 20201118
  2. EVEROLIMUS [Suspect]
     Active Substance: EVEROLIMUS
     Indication: Intestinal transplant
     Dosage: FREQUENCY : TWICE A DAY;?
     Route: 048
     Dates: start: 20201118

REACTIONS (1)
  - Infection [None]
